FAERS Safety Report 5826777-6 (Version None)
Quarter: 2008Q3

REPORT INFORMATION
  Report Type: 
  Country: None (occurrence: None)
  Receive Date: 20080725
  Receipt Date: 20080715
  Transmission Date: 20090109
  Serious: Yes (Other)
  Sender: FDA-Public Use
  Company Number: 2008-170551-NL

PATIENT
  Age: 24 Year
  Sex: Female
  Weight: 95.3 kg

DRUGS (2)
  1. NUVARING [Suspect]
     Dosage: NI VAGINAL
     Route: 067
     Dates: start: 20071218, end: 20080112
  2. NUVARING [Suspect]
     Dosage: NI, 3 WEEKS IN , 1 WEEK OUT
     Route: 067
     Dates: start: 20080201

REACTIONS (3)
  - HAEMORRHAGIC OVARIAN CYST [None]
  - MEDICAL DEVICE COMPLICATION [None]
  - OVARIAN CYST RUPTURED [None]
